FAERS Safety Report 9752239 (Version 1)
Quarter: 2013Q4

REPORT INFORMATION
  Report Type: Spontaneous
  Country: IT (occurrence: None)
  Receive Date: 20131211
  Receipt Date: 20131211
  Transmission Date: 20140711
  Serious: Yes (Hospitalization)
  Sender: FDA-Public Use
  Company Number: 2013AP010206

PATIENT
  Age: 59 Year
  Sex: Female

DRUGS (2)
  1. LEVOFLOXACIN (LEVOFLOXACIN) [Suspect]
     Indication: NECROTISING FASCIITIS
     Route: 048
     Dates: start: 20131022, end: 20131026
  2. VANCOMYCIN HYDROCHLORIDE [Concomitant]

REACTIONS (1)
  - Blood creatinine increased [None]
